FAERS Safety Report 5197812-6 (Version None)
Quarter: 2006Q4

REPORT INFORMATION
  Report Type: 
  Country: None (occurrence: None)
  Receive Date: 20061228
  Receipt Date: 20061213
  Transmission Date: 20070319
  Serious: Yes (Other)
  Sender: FDA-Public Use
  Company Number: 2006BI018389

PATIENT
  Sex: Female

DRUGS (1)
  1. AVONEX [Suspect]
     Indication: DRUG USE FOR UNKNOWN INDICATION
     Dosage: IM
     Route: 030

REACTIONS (6)
  - DEPRESSION [None]
  - HYSTERECTOMY [None]
  - INCREASED TENDENCY TO BRUISE [None]
  - IRRITABILITY [None]
  - MOOD SWINGS [None]
  - RENAL DISORDER [None]
